FAERS Safety Report 7277109-0 (Version None)
Quarter: 2011Q1

REPORT INFORMATION
  Report Type: 
  Country: None (occurrence: None)
  Receive Date: 20110202
  Receipt Date: 20110202
  Transmission Date: 20110831
  Serious: Yes (Other)
  Sender: FDA-Public Use
  Company Number: None

PATIENT
  Sex: Female

DRUGS (2)
  1. COGENTIN [Suspect]
     Indication: DYSKINESIA
     Dosage: 2 PER DAY ORAL
     Route: 048
     Dates: start: 20110108
  2. COGENTIN [Suspect]
     Indication: DYSKINESIA
     Dosage: 2 PER DAY ORAL
     Route: 048
     Dates: start: 20110107

REACTIONS (6)
  - HALLUCINATION, VISUAL [None]
  - MEMORY IMPAIRMENT [None]
  - VISION BLURRED [None]
  - TANGENTIALITY [None]
  - BALANCE DISORDER [None]
  - DYSARTHRIA [None]
